FAERS Safety Report 9074502 (Version 1)
Quarter: 2013Q1

REPORT INFORMATION
  Report Type: Report from Study
  Country: US (occurrence: US)
  Receive Date: 20130128
  Receipt Date: 20130128
  Transmission Date: 20140127
  Serious: No
  Sender: FDA-Public Use
  Company Number: US-ABBOTT-12P-163-0900655-00

PATIENT
  Age: 30 Year
  Sex: Female

DRUGS (4)
  1. HUMIRA 40 MG/0.8 ML PEN [Suspect]
     Indication: CROHN^S DISEASE
     Dates: start: 20111219
  2. DEXILANT [Concomitant]
     Indication: GASTROOESOPHAGEAL REFLUX DISEASE
     Dosage: DAILY
  3. TRAMADOL [Concomitant]
     Indication: ARTHRALGIA
     Dosage: AT NIGHT
  4. CELEXA [Concomitant]
     Indication: DEPRESSION
     Dosage: DAILY

REACTIONS (1)
  - Sinusitis [Not Recovered/Not Resolved]
